FAERS Safety Report 11859657 (Version 1)
Quarter: 2015Q4

REPORT INFORMATION
  Report Type: Spontaneous
  Country: US (occurrence: US)
  Receive Date: 20151221
  Receipt Date: 20151221
  Transmission Date: 20160305
  Serious: Yes (Other)
  Sender: FDA-Public Use
  Company Number: US-GLAXOSMITHKLINE-US2015GSK179988

PATIENT
  Sex: Female

DRUGS (7)
  1. COREG [Suspect]
     Active Substance: CARVEDILOL
     Indication: CARDIAC DISORDER
  2. CRESTOR [Suspect]
     Active Substance: ROSUVASTATIN CALCIUM
     Indication: CARDIAC DISORDER
  3. WARFARIN [Suspect]
     Active Substance: WARFARIN
     Indication: CARDIAC DISORDER
  4. RAMPIL [Suspect]
     Active Substance: RAMIPRIL
     Indication: CARDIAC DISORDER
  5. UNITHROID [Concomitant]
     Active Substance: LEVOTHYROXINE SODIUM
  6. LASIX [Suspect]
     Active Substance: FUROSEMIDE
     Indication: CARDIAC DISORDER
  7. TORSEMIDE. [Concomitant]
     Active Substance: TORSEMIDE

REACTIONS (3)
  - Dyspnoea [Unknown]
  - Breast cancer [Unknown]
  - Stent placement [Unknown]
